FAERS Safety Report 7428747-3 (Version None)
Quarter: 2011Q2

REPORT INFORMATION
  Report Type: 
  Country: None (occurrence: None)
  Receive Date: 20110421
  Receipt Date: 20110413
  Transmission Date: 20111010
  Serious: Yes (Other)
  Sender: FDA-Public Use
  Company Number: FR-PFIZER INC-2011080880

PATIENT
  Age: 42 Year
  Sex: Female

DRUGS (6)
  1. NAROPIN [Suspect]
     Dosage: UNK
     Route: 053
     Dates: start: 20100712, end: 20100712
  2. LEVOTHYROX [Concomitant]
     Dosage: UNK
  3. CARBOCAINE [Suspect]
     Dosage: 0.4G / 20ML
     Route: 053
     Dates: start: 20100712, end: 20100712
  4. XANAX [Suspect]
     Dosage: 0.50 MG
     Route: 048
     Dates: start: 20100712, end: 20100712
  5. UN-ALFA [Concomitant]
     Dosage: UNK
  6. AVLOCARDYL [Concomitant]
     Dosage: UNK

REACTIONS (3)
  - TACHYCARDIA [None]
  - MALAISE [None]
  - DYSPNOEA [None]
